FAERS Safety Report 6348575-X (Version None)
Quarter: 2009Q3

REPORT INFORMATION
  Report Type: 
  Country: None (occurrence: None)
  Receive Date: 20090911
  Receipt Date: 20070716
  Transmission Date: 20100115
  Serious: Yes (Other)
  Sender: FDA-Public Use
  Company Number: US-ASTRAZENECA-2007UW02153

PATIENT
  Age: 45 Year
  Sex: Female
  Weight: 98.4 kg

DRUGS (21)
  1. SEROQUEL [Suspect]
     Indication: MENTAL DISORDER
     Dosage: 25 MG - 125 MG
     Route: 048
     Dates: start: 19980101
  2. SEROQUEL [Suspect]
     Indication: POST-TRAUMATIC STRESS DISORDER
     Dosage: 25 MG - 125 MG
     Route: 048
     Dates: start: 19980101
  3. SEROQUEL [Suspect]
     Indication: BIPOLAR DISORDER
     Dosage: 25 MG - 125 MG
     Route: 048
     Dates: start: 19980101
  4. SEROQUEL [Suspect]
     Indication: SLEEP DISORDER
     Dosage: 25 MG - 125 MG
     Route: 048
     Dates: start: 19980101
  5. SEROQUEL [Suspect]
     Indication: ANXIETY
     Dosage: 25 MG - 125 MG
     Route: 048
     Dates: start: 19980101
  6. SEROQUEL [Suspect]
     Dosage: 25MG X 5/DAY, TOTAL DAILY DOSE - 125 MG
     Route: 048
     Dates: start: 19990101, end: 20060101
  7. SEROQUEL [Suspect]
     Dosage: 25MG X 5/DAY, TOTAL DAILY DOSE - 125 MG
     Route: 048
     Dates: start: 19990101, end: 20060101
  8. SEROQUEL [Suspect]
     Dosage: 25MG X 5/DAY, TOTAL DAILY DOSE - 125 MG
     Route: 048
     Dates: start: 19990101, end: 20060101
  9. SEROQUEL [Suspect]
     Dosage: 25MG X 5/DAY, TOTAL DAILY DOSE - 125 MG
     Route: 048
     Dates: start: 19990101, end: 20060101
  10. SEROQUEL [Suspect]
     Dosage: 25MG X 5/DAY, TOTAL DAILY DOSE - 125 MG
     Route: 048
     Dates: start: 19990101, end: 20060101
  11. CLOZARIL [Concomitant]
     Dosage: 3 X .1MG
     Dates: start: 20010101, end: 20060101
  12. MIDODRINE HYDROCHLORIDE [Concomitant]
     Dosage: 5 MG - 15 MG
     Route: 048
     Dates: start: 20060320
  13. GLUCOPHAGE [Concomitant]
     Dosage: 500 MG -1000 MG
     Route: 048
     Dates: start: 20030514
  14. KLONOPIN [Concomitant]
     Dosage: 0.5 MG - 3 MG
     Route: 048
     Dates: start: 19980101
  15. BUPROPION/BUPROPION SR/WELLBUTRIN [Concomitant]
     Dosage: 150 MG - 300 MG
     Route: 048
     Dates: start: 20030514
  16. LEVOTHYROXINE SODIUM [Concomitant]
     Dosage: 0.125 MG - 100 MG
     Route: 048
     Dates: start: 20020404
  17. ZOCOR [Concomitant]
     Route: 048
     Dates: start: 20041103
  18. NEURONTIN [Concomitant]
     Indication: PAIN
     Dosage: 900 MG - 2100 MG
     Dates: start: 20020102
  19. CELEXA [Concomitant]
     Route: 048
     Dates: start: 19980101
  20. PAXIL [Concomitant]
     Dosage: 40 MG - 50 MG
     Dates: start: 19990916
  21. TRAZODONE [Concomitant]
     Indication: SLEEP DISORDER
     Dosage: 100 MG - 200 MG
     Route: 048
     Dates: start: 20000419

REACTIONS (5)
  - BLOOD CHOLESTEROL INCREASED [None]
  - FIBROMYALGIA [None]
  - HYPERCHOLESTEROLAEMIA [None]
  - SYSTEMIC LUPUS ERYTHEMATOSUS [None]
  - TYPE 2 DIABETES MELLITUS [None]
